FAERS Safety Report 6003243-9 (Version None)
Quarter: 2008Q4

REPORT INFORMATION
  Report Type: 
  Country: None (occurrence: None)
  Receive Date: 20081212
  Receipt Date: 20081212
  Transmission Date: 20090506
  Serious: Yes (Other)
  Sender: FDA-Public Use
  Company Number: None

PATIENT
  Age: 3 Year
  Sex: Female
  Weight: 13.6079 kg

DRUGS (1)
  1. SINGULAIR [Suspect]
     Indication: MULTIPLE ALLERGIES
     Dosage: 1 PACKET OF GRANUALS 1/DAY PO
     Route: 048
     Dates: start: 20081001, end: 20081211

REACTIONS (5)
  - AFFECT LABILITY [None]
  - AGGRESSION [None]
  - DISTURBANCE IN ATTENTION [None]
  - ENURESIS [None]
  - NIGHTMARE [None]
